FAERS Safety Report 9948615 (Version 1)
Quarter: 2014Q1

REPORT INFORMATION
  Report Type: Spontaneous
  Country: CN (occurrence: CN)
  Receive Date: 20140304
  Receipt Date: 20140304
  Transmission Date: 20141002
  Serious: Yes (Hospitalization, Other)
  Sender: FDA-Public Use
  Company Number: CN-009507513-1402CHN013345

PATIENT
  Age: 40 Year
  Sex: Male

DRUGS (1)
  1. DIPROSPAN [Suspect]
     Indication: URTICARIA
     Dosage: 1 ML TOTAL DAILY
     Route: 030
     Dates: start: 20140224, end: 20140224

REACTIONS (1)
  - Shock [Recovered/Resolved]
